FAERS Safety Report 5200913-7 (Version None)
Quarter: 2007Q1

REPORT INFORMATION
  Report Type: 
  Country: None (occurrence: None)
  Receive Date: 20070108
  Receipt Date: 20070103
  Transmission Date: 20070707
  Serious: Yes (Hospitalization)
  Sender: FDA-Public Use
  Company Number: US-BRISTOL-MYERS SQUIBB COMPANY-13630553

PATIENT
  Age: 66 Year
  Sex: Male
  Weight: 61 kg

DRUGS (3)
  1. CETUXIMAB [Suspect]
     Indication: NEOPLASM MALIGNANT
     Route: 042
     Dates: start: 20061211, end: 20061211
  2. CISPLATIN [Suspect]
     Indication: NEOPLASM MALIGNANT
     Route: 042
     Dates: start: 20061211, end: 20061211
  3. RADIATION THERAPY [Suspect]

REACTIONS (9)
  - ANOREXIA [None]
  - BLOOD ALBUMIN DECREASED [None]
  - BLOOD MAGNESIUM DECREASED [None]
  - DIARRHOEA [None]
  - HAEMOGLOBIN [None]
  - NAUSEA [None]
  - STOMATITIS [None]
  - WEIGHT DECREASED [None]
  - WHITE BLOOD CELL DISORDER [None]
